FAERS Safety Report 9532269 (Version 1)
Quarter: 2013Q3

REPORT INFORMATION
  Report Type: Spontaneous
  Country: US (occurrence: US)
  Receive Date: 20130918
  Receipt Date: 20130918
  Transmission Date: 20140515
  Serious: Yes (Other)
  Sender: FDA-Public Use
  Company Number: US-BAXTER-2013BAX035824

PATIENT
  Age: 54 Year
  Sex: Male

DRUGS (1)
  1. IFOSFAMIDE FOR INJECTION [Suspect]
     Indication: SOFT TISSUE NEOPLASM
     Route: 065

REACTIONS (2)
  - Encephalopathy [Unknown]
  - Postural tremor [Recovered/Resolved]
